FAERS Safety Report 15338515 (Version 6)
Quarter: 2019Q3

REPORT INFORMATION
  Report Type: Report from Study
  Country: CO (occurrence: CO)
  Receive Date: 20180831
  Receipt Date: 20190916
  Transmission Date: 20191004
  Serious: Yes (Hospitalization, Other)
  Sender: FDA-Public Use
  Company Number: CO-ASTELLAS-2018US007730

PATIENT
  Age: 40 Year
  Sex: Female

DRUGS (15)
  1. MICARDIS [Concomitant]
     Active Substance: TELMISARTAN
     Indication: PRODUCT USED FOR UNKNOWN INDICATION
     Route: 048
  2. TACROLIMUS. [Interacting]
     Active Substance: TACROLIMUS
     Dosage: 3 MG, UNKNOWN FREQ. (1MG IN MORNING AND 2MG IN NIGHT)
     Route: 048
  3. TACROLIMUS. [Interacting]
     Active Substance: TACROLIMUS
     Dosage: 3 MG ONE DAY AND 2 MG THE NEXT DAY
     Route: 048
  4. MYCOPHENOLATE [Concomitant]
     Active Substance: MYCOPHENOLIC ACID
     Indication: PRODUCT USED FOR UNKNOWN INDICATION
     Route: 048
  5. TACROLIMUS. [Interacting]
     Active Substance: TACROLIMUS
     Dosage: UNK, UNKNOWN FREQ. (CORRECT DOSE)
     Route: 048
     Dates: start: 201901
  6. TACROLIMUS. [Interacting]
     Active Substance: TACROLIMUS
     Route: 048
     Dates: start: 20190614
  7. ATORVASTATIN [Concomitant]
     Active Substance: ATORVASTATIN
     Indication: PRODUCT USED FOR UNKNOWN INDICATION
     Route: 048
  8. LEVOTHYROXINE. [Concomitant]
     Active Substance: LEVOTHYROXINE
     Indication: PRODUCT USED FOR UNKNOWN INDICATION
     Route: 048
  9. PREDNISOLONE. [Suspect]
     Active Substance: PREDNISOLONE
     Indication: PRODUCT USED FOR UNKNOWN INDICATION
     Route: 048
     Dates: start: 20080225
  10. MYCOPHENOLATE [Concomitant]
     Active Substance: MYCOPHENOLIC ACID
     Route: 048
     Dates: start: 20080225
  11. CALCITRIOL. [Concomitant]
     Active Substance: CALCITRIOL
     Indication: PRODUCT USED FOR UNKNOWN INDICATION
     Route: 048
  12. TACROLIMUS. [Suspect]
     Active Substance: TACROLIMUS
     Indication: RENAL TRANSPLANT
     Route: 048
     Dates: start: 20080225
  13. ACETYLSALICYLIC ACID [Concomitant]
     Active Substance: ASPIRIN
     Indication: PRODUCT USED FOR UNKNOWN INDICATION
     Route: 048
  14. ITRACONAZOLE. [Interacting]
     Active Substance: ITRACONAZOLE
     Indication: PRODUCT USED FOR UNKNOWN INDICATION
     Dosage: UNK UNK, TWICE DAILY
     Route: 048
     Dates: start: 20190714
  15. FERROUS SULFATE. [Concomitant]
     Active Substance: FERROUS SULFATE
     Indication: PRODUCT USED FOR UNKNOWN INDICATION
     Route: 048

REACTIONS (9)
  - Blood creatinine increased [Not Recovered/Not Resolved]
  - Drug interaction [Unknown]
  - Urinary tract infection [Unknown]
  - Treatment noncompliance [Unknown]
  - Sjogren^s syndrome [Recovering/Resolving]
  - Kidney transplant rejection [Recovered/Resolved]
  - Toxicity to various agents [Recovered/Resolved]
  - Histoplasmosis disseminated [Not Recovered/Not Resolved]
  - Blood parathyroid hormone increased [Recovering/Resolving]

NARRATIVE: CASE EVENT DATE: 2014
